FAERS Safety Report 13115654 (Version 2)
Quarter: 2018Q1

REPORT INFORMATION
  Report Type: Spontaneous
  Country: BR (occurrence: BR)
  Receive Date: 20170114
  Receipt Date: 20180223
  Transmission Date: 20180508
  Serious: Yes (Hospitalization, Other)
  Sender: FDA-Public Use
  Company Number: BR-STRIDES ARCOLAB LIMITED-2017SP000311

PATIENT

DRUGS (3)
  1. CALCITRIOL. [Suspect]
     Active Substance: CALCITRIOL
     Indication: PRODUCT USED FOR UNKNOWN INDICATION
     Dosage: 0.25 ?G, UNKNOWN
     Route: 048
  2. CALCIFEDIOL [Suspect]
     Active Substance: CALCIFEDIOL
     Indication: PRODUCT USED FOR UNKNOWN INDICATION
     Dosage: 16 NG/ML, UNK
     Route: 065
  3. COLECALCIFEROL [Suspect]
     Active Substance: CHOLECALCIFEROL
     Indication: PRODUCT USED FOR UNKNOWN INDICATION
     Dosage: 2000 IU, QD
     Route: 048

REACTIONS (7)
  - Hypercalcaemia [Recovered/Resolved]
  - Hypervitaminosis [Recovered/Resolved]
  - Nausea [Recovered/Resolved]
  - Malaise [Recovered/Resolved]
  - Intentional product misuse [Recovered/Resolved]
  - Acute kidney injury [Recovered/Resolved]
  - Asthenia [Recovered/Resolved]
